FAERS Safety Report 4700789-8 (Version None)
Quarter: 2005Q2

REPORT INFORMATION
  Report Type: 
  Country: None (occurrence: None)
  Receive Date: 20050624
  Receipt Date: 20050422
  Transmission Date: 20051028
  Serious: Yes (Other)
  Sender: FDA-Public Use
  Company Number: 402872

PATIENT
  Age: 65 Year
  Sex: Male

DRUGS (6)
  1. CAPECITABINE (CAPECITABINE) [Suspect]
     Indication: PANCREATIC CARCINOMA
     Dosage: 800 MG/M2 2 PER DAY ORAL
     Route: 048
  2. REGLAN [Concomitant]
  3. ZANTAC [Concomitant]
  4. COLACE (DOCUSATE SODIUM) [Concomitant]
  5. MEGACE [Concomitant]
  6. PANCRELIPASE [Concomitant]

REACTIONS (1)
  - NEUROPATHY PERIPHERAL [None]
